FAERS Safety Report 8790835 (Version 1)
Quarter: 2012Q4

REPORT INFORMATION
  Report Type: Spontaneous
  Country: CH (occurrence: None)
  Receive Date: 20120910
  Receipt Date: 20120910
  Transmission Date: 20130627
  Serious: Yes (Life-Threatening, Hospitalization)
  Sender: FDA-Public Use
  Company Number: DSA_59224_2012

PATIENT
  Age: 52 Year
  Sex: Female

DRUGS (3)
  1. FLAGYL [Suspect]
     Indication: PRODUCT USED FOR UNKNOWN  INDICATION
     Route: 048
     Dates: start: 2012, end: 2012
  2. PANTOZOL [Suspect]
     Indication: PRODUCT USED FOR UNKNOWN  INDICATION
     Dosage: (DF Oral)
     Route: 048
     Dates: start: 2012, end: 2012
  3. ORNIDAZOLE [Suspect]
     Indication: PRODUCT USED FOR UNKNOWN  INDICATION
     Dosage: (DF Oral)
     Route: 048
     Dates: start: 2012, end: 2012

REACTIONS (4)
  - Hepatitis acute [None]
  - Acute hepatic failure [None]
  - Hepatic necrosis [None]
  - Liver transplant [None]
